FAERS Safety Report 25891533 (Version 1)
Quarter: 2025Q4

REPORT INFORMATION
  Report Type: Spontaneous
  Country: US (occurrence: None)
  Receive Date: 20251007
  Receipt Date: 20251007
  Transmission Date: 20260118
  Serious: Yes (Other)
  Sender: FDA-CTU
  Company Number: None

PATIENT
  Age: 41 Year
  Sex: Male
  Weight: 83.25 kg

DRUGS (7)
  1. COSENTYX [Suspect]
     Active Substance: SECUKINUMAB
     Indication: Psoriasis
     Dosage: 300 MG EVERY 4 WEKS SUBCUTANEUS
     Route: 058
  2. VTAMA [Concomitant]
     Active Substance: TAPINAROF
  3. Tegretol XR 200 mg [Concomitant]
  4. Albuterol Sulfate HFA 108 AERS [Concomitant]
  5. Sildenafil Citrate 100 mg tabs [Concomitant]
  6. FLONASE ALLERGY RELIEF [Concomitant]
     Active Substance: FLUTICASONE PROPIONATE
  7. Allegra Allergy 180 mg Tabs [Concomitant]

REACTIONS (5)
  - Erythema [None]
  - Skin discolouration [None]
  - Condition aggravated [None]
  - Memory impairment [None]
  - Product dose omission in error [None]

NARRATIVE: CASE EVENT DATE: 20251007
